FAERS Safety Report 25908235 (Version 2)
Quarter: 2025Q4

REPORT INFORMATION
  Report Type: Spontaneous
  Country: US (occurrence: US)
  Receive Date: 20251010
  Receipt Date: 20251105
  Transmission Date: 20260118
  Serious: Yes (Other)
  Sender: GLAUKOS
  Company Number: US-GLK-000684

PATIENT

DRUGS (2)
  1. IDOSE TR [Suspect]
     Active Substance: TRAVOPROST
     Indication: Product used for unknown indication
     Dosage: OPERATED ON LEFT EYE (OS)
     Route: 047
     Dates: start: 202504, end: 202504
  2. IDOSE TR [Suspect]
     Active Substance: TRAVOPROST

REACTIONS (5)
  - Medical device removal [Unknown]
  - Cystoid macular oedema [Unknown]
  - Cystoid macular oedema [Unknown]
  - Intraocular pressure increased [Unknown]
  - Intraocular pressure increased [Unknown]
